FAERS Safety Report 5395207-3 (Version None)
Quarter: 2007Q3

REPORT INFORMATION
  Report Type: 
  Country: None (occurrence: None)
  Receive Date: 20070724
  Receipt Date: 20070712
  Transmission Date: 20080115
  Serious: Yes (Death, Life-Threatening)
  Sender: FDA-Public Use
  Company Number: HU-BRISTOL-MYERS SQUIBB COMPANY-13813993

PATIENT
  Age: 76 Year
  Sex: Male

DRUGS (6)
  1. CISPLATIN [Suspect]
     Indication: SQUAMOUS CELL CARCINOMA
     Route: 042
     Dates: start: 20051007, end: 20051007
  2. FLUOROURACIL [Suspect]
     Indication: SQUAMOUS CELL CARCINOMA
     Route: 042
     Dates: start: 20051007, end: 20051007
  3. CALCIUM FOLINATE [Concomitant]
  4. ONDANSETRON [Concomitant]
  5. METHYLPREDNISOLONE [Concomitant]
  6. FUROSEMIDE [Concomitant]

REACTIONS (5)
  - ACUTE RESPIRATORY DISTRESS SYNDROME [None]
  - ASTHENIA [None]
  - DEHYDRATION [None]
  - FATIGUE [None]
  - HYPOVOLAEMIA [None]
